FAERS Safety Report 11445493 (Version 1)
Quarter: 2015Q3

REPORT INFORMATION
  Report Type: Spontaneous
  Country: CH (occurrence: CH)
  Receive Date: 20150902
  Receipt Date: 20150902
  Transmission Date: 20151125
  Serious: Yes (Other)
  Sender: FDA-Public Use
  Company Number: CH-PFIZER INC-2015290214

PATIENT
  Age: 85 Year
  Sex: Male

DRUGS (7)
  1. SINTROM [Concomitant]
     Active Substance: ACENOCOUMAROL
     Dosage: UNK
  2. CORDARONE [Suspect]
     Active Substance: AMIODARONE HYDROCHLORIDE
     Indication: ATRIAL FIBRILLATION
     Dosage: 200 MG, DAILY
     Route: 048
     Dates: end: 20150117
  3. BELOC [Concomitant]
     Active Substance: METOPROLOL TARTRATE
     Dosage: UNK
  4. NOXAFIL [Interacting]
     Active Substance: POSACONAZOLE
     Indication: LIVER ABSCESS
     Dosage: 200 MG, 4X/DAY
     Route: 048
     Dates: start: 20150119
  5. CRESTOR [Concomitant]
     Active Substance: ROSUVASTATIN CALCIUM
     Dosage: UNK
     Dates: start: 20150119
  6. CIPROFLOXACIN HCL [Interacting]
     Active Substance: CIPROFLOXACIN HYDROCHLORIDE
     Indication: URINARY TRACT INFECTION
     Dosage: UNK
     Route: 048
     Dates: start: 20150216, end: 20150220
  7. DIOVAN [Concomitant]
     Active Substance: VALSARTAN
     Dosage: UNK

REACTIONS (2)
  - Electrocardiogram QT prolonged [Recovered/Resolved]
  - Drug interaction [Recovered/Resolved]

NARRATIVE: CASE EVENT DATE: 20150122
